FAERS Safety Report 22638563 (Version 3)
Quarter: 2024Q1

REPORT INFORMATION
  Report Type: Spontaneous
  Country: FR (occurrence: FR)
  Receive Date: 20230626
  Receipt Date: 20240314
  Transmission Date: 20240410
  Serious: Yes (Hospitalization, Other)
  Sender: FDA-Public Use
  Company Number: FR-AFSSAPS-AN2023000791

PATIENT
  Age: 53 Year
  Sex: Male
  Weight: 54.3 kg

DRUGS (16)
  1. EPHEDRINE [Suspect]
     Active Substance: EPHEDRINE
     Indication: Procedural hypotension
     Dosage: 39 MILLIGRAM, 1 TOTAL
     Route: 042
     Dates: start: 20230517, end: 20230517
  2. OCTREOTIDE [Suspect]
     Active Substance: OCTREOTIDE\OCTREOTIDE ACETATE
     Indication: Adenocarcinoma pancreas
     Dosage: 50 GRAM, EVERY HOUR
     Route: 042
     Dates: start: 20230512, end: 20230516
  3. GEMCITABINE [Suspect]
     Active Substance: GEMCITABINE
     Indication: Adenocarcinoma pancreas
     Dosage: 1520 MILLIGRAM, 1 TOTAL
     Route: 042
     Dates: start: 20230515, end: 20230515
  4. PACLITAXEL [Suspect]
     Active Substance: PACLITAXEL
     Indication: Adenocarcinoma pancreas
     Dosage: 190 MILLIGRAM, 1 TOTAL
     Route: 042
     Dates: start: 20230515, end: 20230515
  5. HYDROCORTISONE [Suspect]
     Active Substance: HYDROCORTISONE
     Indication: Prophylaxis
     Dosage: 100 MILLIGRAM, 1 TOTAL
     Route: 042
     Dates: start: 20230517, end: 20230517
  6. ROCURONIUM BROMIDE [Suspect]
     Active Substance: ROCURONIUM BROMIDE
     Indication: Induction of anaesthesia
     Dosage: 70 MILLIGRAM, 1 TOTAL
     Route: 042
     Dates: start: 20230517, end: 20230517
  7. ACUPAN [Suspect]
     Active Substance: NEFOPAM HYDROCHLORIDE
     Indication: Pain prophylaxis
     Dosage: UNK
     Route: 042
     Dates: start: 20230516
  8. KETAMINE [Suspect]
     Active Substance: KETAMINE
     Indication: Induction of anaesthesia
     Dosage: 25 MILLIGRAM, 1 TOTAL
     Route: 042
     Dates: start: 20230517, end: 20230517
  9. PROPOFOL [Suspect]
     Active Substance: PROPOFOL
     Indication: Induction of anaesthesia
     Dosage: 635 MILLIGRAM, 1 TOTAL
     Route: 042
     Dates: start: 20230517, end: 20230517
  10. SUFENTANIL [Suspect]
     Active Substance: SUFENTANIL
     Indication: Induction of anaesthesia
     Dosage: 25 MICROGRAM, 1 TOTAL
     Route: 042
     Dates: start: 20230517, end: 20230517
  11. PIPERACILLIN SODIUM\TAZOBACTAM SODIUM [Suspect]
     Active Substance: PIPERACILLIN SODIUM\TAZOBACTAM SODIUM
     Indication: Infection prophylaxis
     Dosage: 4 GRAM
     Route: 042
     Dates: start: 20230517, end: 20230522
  12. LOVENOX [Concomitant]
     Active Substance: ENOXAPARIN SODIUM
     Indication: Product used for unknown indication
     Dosage: UNK
     Route: 058
  13. INSULIN GLARGINE [Concomitant]
     Active Substance: INSULIN GLARGINE
     Indication: Product used for unknown indication
     Dosage: 7 INTERNATIONAL UNIT, ONCE A DAY
     Route: 058
  14. HUMALOG [Concomitant]
     Active Substance: INSULIN LISPRO
     Indication: Product used for unknown indication
     Dosage: 10 INTERNATIONAL UNIT, ONCE A DAY
     Route: 058
  15. LANSOPRAZOLE [Concomitant]
     Active Substance: LANSOPRAZOLE
     Indication: Product used for unknown indication
     Dosage: 30 MILLIGRAM, ONCE A DAY
     Route: 048
     Dates: start: 20230512, end: 20230516
  16. PREDNISOLONE [Concomitant]
     Active Substance: PREDNISOLONE
     Indication: Product used for unknown indication
     Dosage: 40 MILLIGRAM, ONCE A DAY
     Route: 048
     Dates: start: 20230513, end: 20230520

REACTIONS (1)
  - Pancytopenia [Recovered/Resolved]

NARRATIVE: CASE EVENT DATE: 20230517
